FAERS Safety Report 7458616-4 (Version None)
Quarter: 2011Q2

REPORT INFORMATION
  Report Type: 
  Country: None (occurrence: None)
  Receive Date: 20110503
  Receipt Date: 20110503
  Transmission Date: 20111010
  Serious: Yes (Hospitalization)
  Sender: FDA-Public Use
  Company Number: None

PATIENT
  Age: 64 Year
  Sex: Male
  Weight: 89.1 kg

DRUGS (2)
  1. ACETAMINOPHEN/DIPHENHYDRAMINE/PSEUDOEPHEDRINE [Suspect]
     Dosage: 1 TAB HS PO
     Route: 048
     Dates: start: 20110326, end: 20110406
  2. ACETAMINOPHEN AND HYDROCODONE BITARTRATE [Suspect]
     Dosage: 1 TAB QID PO
     Route: 048
     Dates: start: 20110326, end: 20110406

REACTIONS (4)
  - ABDOMINAL PAIN UPPER [None]
  - OVERDOSE [None]
  - JAUNDICE [None]
  - LIVER FUNCTION TEST ABNORMAL [None]
